FAERS Safety Report 20154777 (Version 1)
Quarter: 2021Q4

REPORT INFORMATION
  Report Type: Report from Study
  Country: US (occurrence: US)
  Receive Date: 20211207
  Receipt Date: 20211207
  Transmission Date: 20220303
  Serious: Yes (Other)
  Sender: FDA-Public Use
  Company Number: US-GILEAD-2021-0558876

PATIENT
  Sex: Female

DRUGS (11)
  1. AZTREONAM LYSINE [Suspect]
     Active Substance: AZTREONAM LYSINE
     Indication: Cystic fibrosis lung
     Dosage: 75 MG, TID EVERY OTHER MONTH
     Route: 055
  2. ELIQUIS [Concomitant]
     Active Substance: APIXABAN
  3. LEVALBUTEROL HYDROCHLORIDE [Concomitant]
     Active Substance: LEVALBUTEROL HYDROCHLORIDE
  4. COLCHICINE [Concomitant]
     Active Substance: COLCHICINE
  5. VITAMIN D NOS [Concomitant]
     Active Substance: VITAMIN D NOS
  6. ALLEGRA [Concomitant]
     Active Substance: FEXOFENADINE HYDROCHLORIDE
  7. URSODIOL [Concomitant]
     Active Substance: URSODIOL
  8. PULMOZYME [Concomitant]
     Active Substance: DORNASE ALFA
  9. TRIKAFTA [Concomitant]
     Active Substance: ELEXACAFTOR\IVACAFTOR\TEZACAFTOR
  10. IPRATROPIUM BROMIDE [Concomitant]
     Active Substance: IPRATROPIUM BROMIDE
  11. ZENPEP [Concomitant]
     Active Substance: PANCRELIPASE AMYLASE\PANCRELIPASE LIPASE\PANCRELIPASE PROTEASE

REACTIONS (2)
  - Cystic fibrosis [Unknown]
  - Infection [Unknown]
